FAERS Safety Report 4367201-2 (Version None)
Quarter: 2004Q2

REPORT INFORMATION
  Report Type: 
  Country: None (occurrence: None)
  Receive Date: 20040524
  Receipt Date: 20040518
  Transmission Date: 20050107
  Serious: Yes (Life-Threatening)
  Sender: FDA-Public Use
  Company Number: 2004UW10358

PATIENT
  Age: 25 Year
  Sex: Male

DRUGS (6)
  1. IRESSA [Suspect]
     Indication: SARCOMA
     Dates: start: 20040514
  2. OXYCONTIN [Concomitant]
  3. VICODIN [Concomitant]
  4. AVANDIA [Concomitant]
  5. GLUCOPHAGE [Concomitant]
  6. INSULIN [Concomitant]

REACTIONS (2)
  - METASTASES TO LUNG [None]
  - RESPIRATORY DISTRESS [None]
